FAERS Safety Report 11631279 (Version 2)
Quarter: 2015Q4

REPORT INFORMATION
  Report Type: Report from Study
  Country: US (occurrence: US)
  Receive Date: 20151014
  Receipt Date: 20151106
  Transmission Date: 20160304
  Serious: Yes (Other)
  Sender: FDA-Public Use
  Company Number: US-AMGEN-USASP2015104919

PATIENT
  Age: 81 Year
  Sex: Female

DRUGS (1)
  1. ENBREL [Suspect]
     Active Substance: ETANERCEPT
     Indication: RHEUMATOID ARTHRITIS
     Dosage: 50 MG, QWK
     Route: 065
     Dates: start: 20150615

REACTIONS (8)
  - Eczema [Unknown]
  - Joint surgery [Unknown]
  - Injection site bruising [Unknown]
  - Sensitivity of teeth [Recovered/Resolved]
  - Arthritis [Unknown]
  - Injection site erythema [Unknown]
  - Injection site swelling [Unknown]
  - Pain in extremity [Unknown]

NARRATIVE: CASE EVENT DATE: 2015
